FAERS Safety Report 5484169-6 (Version None)
Quarter: 2007Q4

REPORT INFORMATION
  Report Type: 
  Country: None (occurrence: None)
  Receive Date: 20071012
  Receipt Date: 20070814
  Transmission Date: 20080405
  Serious: Yes (Other)
  Sender: FDA-Public Use
  Company Number: US-ASTRAZENECA-2007UW19631

PATIENT
  Age: 45 Year
  Sex: Male

DRUGS (2)
  1. SYMBICORT [Suspect]
     Dosage: 160.4.5
     Route: 055
  2. ALBUTEROL [Concomitant]

REACTIONS (1)
  - TACHYCARDIA [None]
